FAERS Safety Report 8369407-4 (Version None)
Quarter: 2012Q2

REPORT INFORMATION
  Report Type: 
  Country: None (occurrence: None)
  Receive Date: 20120518
  Receipt Date: 20120514
  Transmission Date: 20120825
  Serious: Yes (Hospitalization, Other)
  Sender: FDA-Public Use
  Company Number: JP-PFIZER INC-2012084424

PATIENT
  Age: 50 Year
  Sex: Female
  Weight: 51 kg

DRUGS (3)
  1. ETODOLAC [Suspect]
     Dosage: UNK
     Route: 048
     Dates: end: 20120329
  2. LEVOTOMIN [Suspect]
     Dosage: UNK
     Route: 048
     Dates: end: 20120329
  3. LYRICA [Suspect]
     Indication: BACK PAIN
     Dosage: UNK
     Route: 048
     Dates: end: 20120329

REACTIONS (7)
  - SUICIDE ATTEMPT [None]
  - HALLUCINATIONS, MIXED [None]
  - DELIRIUM [None]
  - LEFT VENTRICULAR DYSFUNCTION [None]
  - EMOTIONAL DISORDER [None]
  - INTENTIONAL OVERDOSE [None]
  - ALTERED STATE OF CONSCIOUSNESS [None]
